FAERS Safety Report 5018861-4 (Version None)
Quarter: 2006Q2

REPORT INFORMATION
  Report Type: 
  Country: None (occurrence: None)
  Receive Date: 20060606
  Receipt Date: 20060529
  Transmission Date: 20061013
  Serious: Yes (Life-Threatening)
  Sender: FDA-Public Use
  Company Number: JP-JNJFOC-20060506233

PATIENT
  Age: 70 Year
  Sex: Male

DRUGS (4)
  1. DUROTEP [Suspect]
     Route: 062
  2. DUROTEP [Suspect]
     Indication: METASTASES TO BONE
     Route: 062
  3. DUROTEP [Suspect]
     Indication: PROSTATE CANCER
     Route: 062
  4. MORPHINE [Concomitant]
     Route: 048

REACTIONS (1)
  - LARGE INTESTINE PERFORATION [None]
